FAERS Safety Report 19188936 (Version 1)
Quarter: 2021Q2

REPORT INFORMATION
  Report Type: Spontaneous
  Country: US (occurrence: US)
  Receive Date: 20210427
  Receipt Date: 20210427
  Transmission Date: 20210717
  Serious: Yes (Disabling)
  Sender: FDA-Public Use
  Company Number: None

PATIENT
  Age: 59 Year
  Sex: Female
  Weight: 77.11 kg

DRUGS (1)
  1. HALDOL (HALOPERIDOL LACTATE) [Suspect]
     Active Substance: HALOPERIDOL LACTATE
     Indication: PSYCHOTIC DISORDER
     Dosage: ?          QUANTITY:1 DF DOSAGE FORM;?
     Dates: start: 20210204, end: 20210204

REACTIONS (2)
  - Abdominal discomfort [None]
  - Vomiting [None]

NARRATIVE: CASE EVENT DATE: 20210206
